FAERS Safety Report 4313810-6 (Version None)
Quarter: 2004Q1

REPORT INFORMATION
  Report Type: 
  Country: None (occurrence: None)
  Receive Date: 20040305
  Receipt Date: 20040218
  Transmission Date: 20041129
  Serious: Yes (Life-Threatening, Hospitalization, Disabling)
  Sender: FDA-Public Use
  Company Number: FR-SHR-03-018390

PATIENT
  Age: 31 Year
  Sex: Female

DRUGS (1)
  1. MIRENA [Suspect]
     Indication: CONTRACEPTION
     Dosage: 20 UG, CONT, INTRA-UTERINE
     Route: 015
     Dates: start: 20031124, end: 20031127

REACTIONS (22)
  - ABDOMINAL PAIN [None]
  - DISSEMINATED INTRAVASCULAR COAGULATION [None]
  - EMBOLISM [None]
  - EPISTAXIS [None]
  - GANGRENE [None]
  - GASTROENTERITIS [None]
  - INFLUENZA [None]
  - INTESTINAL GANGRENE [None]
  - IUCD COMPLICATION [None]
  - LEG AMPUTATION [None]
  - LEUKOPENIA [None]
  - MUSCLE NECROSIS [None]
  - MUSCULOSKELETAL STIFFNESS [None]
  - OSTEONECROSIS [None]
  - OVARIAN NECROSIS [None]
  - PERITONITIS [None]
  - PYREXIA [None]
  - SALPINGITIS [None]
  - SEPTIC SHOCK [None]
  - SKIN DISCOLOURATION [None]
  - STREPTOCOCCAL SEPSIS [None]
  - UTERINE HAEMORRHAGE [None]
